FAERS Safety Report 19449819 (Version 1)
Quarter: 2021Q2

REPORT INFORMATION
  Report Type: Spontaneous
  Country: US (occurrence: US)
  Receive Date: 20210622
  Receipt Date: 20210622
  Transmission Date: 20210717
  Serious: No
  Sender: FDA-Public Use
  Company Number: US-ELI_LILLY_AND_COMPANY-US202105011216

PATIENT
  Age: 59 Year
  Sex: Female

DRUGS (2)
  1. BASAGLAR [Suspect]
     Active Substance: INSULIN GLARGINE
     Indication: TYPE 2 DIABETES MELLITUS
     Dosage: 24 U, DAILY
     Route: 065
     Dates: start: 202101
  2. SEGLUROMET [Concomitant]
     Active Substance: ERTUGLIFLOZIN PIDOLATE\METFORMIN HYDROCHLORIDE
     Indication: TYPE 2 DIABETES MELLITUS
     Dosage: 7.5 MG, UNKNOWN
     Route: 065

REACTIONS (3)
  - Influenza [Recovered/Resolved]
  - Throat irritation [Recovered/Resolved]
  - Pharyngeal inflammation [Recovered/Resolved]

NARRATIVE: CASE EVENT DATE: 202104
